FAERS Safety Report 5753368-8 (Version None)
Quarter: 2008Q2

REPORT INFORMATION
  Report Type: 
  Country: None (occurrence: None)
  Receive Date: 20080530
  Receipt Date: 20080521
  Transmission Date: 20081010
  Serious: Yes (Hospitalization)
  Sender: FDA-Public Use
  Company Number: FR-ELI_LILLY_AND_COMPANY-FR200804005356

PATIENT
  Age: 73 Year
  Sex: Female

DRUGS (9)
  1. FORTEO [Suspect]
     Indication: OSTEOPOROSIS
     Dosage: 20 UG, DAILY (1/D)
     Route: 058
     Dates: start: 20080125, end: 20080411
  2. LOXEN [Concomitant]
  3. COZAAR [Concomitant]
  4. FLECAINIDE ACETATE [Concomitant]
  5. EFFEXOR [Concomitant]
  6. ZOLPIDEM TARTRATE [Concomitant]
  7. ALPRAZOLAM [Concomitant]
  8. SERETIDE [Concomitant]
  9. FORLAX [Concomitant]

REACTIONS (5)
  - DIZZINESS [None]
  - FALL [None]
  - NAUSEA [None]
  - NIGHT SWEATS [None]
  - WRIST FRACTURE [None]
